FAERS Safety Report 7575016-7 (Version None)
Quarter: 2011Q2

REPORT INFORMATION
  Report Type: 
  Country: None (occurrence: None)
  Receive Date: 20110627
  Receipt Date: 20110204
  Transmission Date: 20111010
  Serious: Yes (Hospitalization, Other)
  Sender: FDA-Public Use
  Company Number: US-BAYER-201041591NA

PATIENT
  Age: 23 Year
  Sex: Female
  Weight: 105.44 kg

DRUGS (3)
  1. LEXAPRO [Concomitant]
     Indication: DEPRESSION
     Dosage: 10 MG, QD
     Route: 048
     Dates: start: 20091001
  2. AZITHROMYCIN [Concomitant]
     Indication: BRONCHITIS
     Dosage: UNK
     Route: 048
     Dates: start: 20100301
  3. YAZ [Suspect]
     Indication: CONTRACEPTION
     Route: 048
     Dates: start: 20091223, end: 20100304

REACTIONS (2)
  - PULMONARY INFARCTION [None]
  - PULMONARY EMBOLISM [None]
